FAERS Safety Report 25659809 (Version 1)
Quarter: 2025Q3

REPORT INFORMATION
  Report Type: Spontaneous
  Country: US (occurrence: US)
  Receive Date: 20250808
  Receipt Date: 20250808
  Transmission Date: 20251021
  Serious: Yes (Other)
  Sender: MERCK SHARP & DOHME LLC
  Company Number: US-009507513-2317496

PATIENT
  Age: 73 Year
  Sex: Female

DRUGS (2)
  1. PEMBROLIZUMAB [Suspect]
     Active Substance: PEMBROLIZUMAB
     Indication: Ovarian clear cell carcinoma
     Dosage: 200MG, Q3W
     Route: 042
  2. LENVATINIB [Suspect]
     Active Substance: LENVATINIB
     Indication: Ovarian clear cell carcinoma
     Dosage: STARTING DOSE:10MG DAILY
     Route: 048

REACTIONS (8)
  - Hypothyroidism [Unknown]
  - Fatigue [Unknown]
  - Headache [Unknown]
  - Hypertension [Unknown]
  - Proteinuria [Unknown]
  - Off label use [Unknown]
  - Arthralgia [Unknown]
  - Diarrhoea [Unknown]
